FAERS Safety Report 4602946-8 (Version None)
Quarter: 2005Q1

REPORT INFORMATION
  Report Type: 
  Country: None (occurrence: None)
  Receive Date: 20050307
  Receipt Date: 20050218
  Transmission Date: 20050727
  Serious: Yes (Congenital Anomaly)
  Sender: FDA-Public Use
  Company Number: 10347

PATIENT

DRUGS (1)
  1. METHOTREXATE [Suspect]

REACTIONS (6)
  - CONGENITAL FOOT MALFORMATION [None]
  - DRUG EXPOSURE DURING PREGNANCY [None]
  - OFF LABEL USE [None]
  - PREMATURE BABY [None]
  - SKULL MALFORMATION [None]
  - SYNDACTYLY [None]
